FAERS Safety Report 8241409-8 (Version None)
Quarter: 2012Q1

REPORT INFORMATION
  Report Type: 
  Country: None (occurrence: None)
  Receive Date: 20120328
  Receipt Date: 20120322
  Transmission Date: 20120608
  Serious: Yes (Disabling)
  Sender: FDA-Public Use
  Company Number: US-ALEXION PHARMACEUTICALS INC.-A201101676

PATIENT
  Sex: Female
  Weight: 54.422 kg

DRUGS (2)
  1. SOLIRIS [Suspect]
     Indication: PAROXYSMAL NOCTURNAL HAEMOGLOBINURIA
     Dosage: 900 MG, Q2W
     Route: 042
     Dates: start: 20070514
  2. RENAX [Concomitant]
     Indication: OSTEODYSTROPHY
     Dosage: UNK

REACTIONS (1)
  - OSTEONECROSIS [None]
